FAERS Safety Report 5291179-0 (Version None)
Quarter: 2007Q2

REPORT INFORMATION
  Report Type: 
  Country: None (occurrence: None)
  Receive Date: 20070409
  Receipt Date: 20070329
  Transmission Date: 20071010
  Serious: Yes (Hospitalization, Disabling)
  Sender: FDA-Public Use
  Company Number: GB-ROCHE-475610

PATIENT
  Age: 43 Year
  Sex: Female
  Weight: 81 kg

DRUGS (15)
  1. XENICAL [Suspect]
     Indication: OBESITY
     Route: 048
     Dates: start: 20060721, end: 20070115
  2. IBUPROFEN [Concomitant]
  3. DIAZEPAM [Concomitant]
  4. OMEPRAZOLE [Concomitant]
  5. EPILIM [Concomitant]
  6. ASPIRIN [Concomitant]
  7. CODEINE PHOSPHATE [Concomitant]
  8. METOCLOPRAMIDE [Concomitant]
  9. RAMIPRIL [Concomitant]
  10. ZOPICLONE [Concomitant]
  11. SIMVASTATIN [Concomitant]
  12. INDAPAMIDE [Concomitant]
  13. VALPROATE SODIUM [Concomitant]
     Route: 065
  14. LANSOPRAZOLE [Concomitant]
  15. TRAMADOL HCL [Concomitant]

REACTIONS (10)
  - ABDOMINAL PAIN [None]
  - ABDOMINAL PAIN LOWER [None]
  - BACK PAIN [None]
  - CEREBROVASCULAR ACCIDENT [None]
  - GASTRITIS [None]
  - GASTROINTESTINAL INFECTION [None]
  - HEMIPARESIS [None]
  - MOBILITY DECREASED [None]
  - PSEUDOMEMBRANOUS COLITIS [None]
  - SPEECH DISORDER [None]
